FAERS Safety Report 9369820 (Version 1)
Quarter: 2013Q2

REPORT INFORMATION
  Report Type: Spontaneous
  Country: US (occurrence: US)
  Receive Date: 20130626
  Receipt Date: 20130626
  Transmission Date: 20140414
  Serious: Yes (Other)
  Sender: FDA-Public Use
  Company Number: US-PFIZER INC-2013189832

PATIENT
  Age: 70 Year
  Sex: Male
  Weight: 72.56 kg

DRUGS (2)
  1. LYRICA [Suspect]
     Indication: DIABETIC NEUROPATHY
     Dosage: 150 MG, 2X/DAY
     Route: 048
     Dates: start: 1965
  2. ADCETRIS [Suspect]
     Indication: HODGKIN^S DISEASE
     Dosage: UNK, EVERY 3 WEEKS
     Dates: start: 201304

REACTIONS (4)
  - Hodgkin^s disease [Not Recovered/Not Resolved]
  - Neuropathy peripheral [Unknown]
  - Pain [Unknown]
  - Pain in extremity [Unknown]
